FAERS Safety Report 19003579 (Version 2)
Quarter: 2021Q1

REPORT INFORMATION
  Report Type: Report from Study
  Country: US (occurrence: US)
  Receive Date: 20210312
  Receipt Date: 20210322
  Transmission Date: 20210420
  Serious: No
  Sender: FDA-Public Use
  Company Number: NVSC2021US051952

PATIENT
  Age: 74 Year
  Sex: Female

DRUGS (2)
  1. XIIDRA [Suspect]
     Active Substance: LIFITEGRAST
     Indication: TUNNEL VISION
     Dosage: UNK
     Route: 065
     Dates: start: 202011
  2. XIIDRA [Suspect]
     Active Substance: LIFITEGRAST
     Indication: VISION BLURRED

REACTIONS (1)
  - Eye irritation [Not Recovered/Not Resolved]

NARRATIVE: CASE EVENT DATE: 202011
